FAERS Safety Report 14584948 (Version 1)
Quarter: 2018Q1

REPORT INFORMATION
  Report Type: Report from Study
  Country: US (occurrence: US)
  Receive Date: 20180301
  Receipt Date: 20180301
  Transmission Date: 20180509
  Serious: No
  Sender: FDA-Public Use
  Company Number: US-CELGENEUS-USA-20180208540

PATIENT

DRUGS (4)
  1. OTEZLA [Suspect]
     Active Substance: APREMILAST
     Indication: PSORIASIS
     Route: 048
     Dates: start: 2018, end: 201802
  2. OTEZLA [Suspect]
     Active Substance: APREMILAST
     Indication: MULTIPLE SCLEROSIS
  3. COCONUT OIL [Concomitant]
     Active Substance: COCONUT OIL
     Indication: PRODUCT USED FOR UNKNOWN INDICATION
     Route: 065
  4. OTEZLA [Suspect]
     Active Substance: APREMILAST
     Indication: PSORIATIC ARTHROPATHY

REACTIONS (6)
  - Corneal abrasion [Recovered/Resolved]
  - Abdominal discomfort [Unknown]
  - Pain [Unknown]
  - Therapeutic response decreased [Unknown]
  - Alopecia [Unknown]
  - Unevaluable event [Unknown]
